FAERS Safety Report 12783376 (Version 1)
Quarter: 2016Q3

REPORT INFORMATION
  Report Type: Spontaneous
  Country: US (occurrence: US)
  Receive Date: 20160927
  Receipt Date: 20160927
  Transmission Date: 20161109
  Serious: Yes (Death, Other)
  Sender: FDA-Public Use
  Company Number: US-CIPLA LTD.-2016US18530

PATIENT

DRUGS (11)
  1. CLOZAPINE. [Interacting]
     Active Substance: CLOZAPINE
     Dosage: 50 MG, ON DAY 2, 3 AND 4
     Route: 065
  2. HYDROCHLOROTHIAZIDE. [Suspect]
     Active Substance: HYDROCHLOROTHIAZIDE
     Indication: HYPERTENSION
     Dosage: 25 MG, PER DAY
     Route: 065
  3. CLOZAPINE. [Interacting]
     Active Substance: CLOZAPINE
     Dosage: 100 MG, ON DAY 5, 6 AND 7
     Route: 065
  4. DIVALPROEX SODIUM. [Interacting]
     Active Substance: DIVALPROEX SODIUM
     Indication: SCHIZOAFFECTIVE DISORDER
     Dosage: 1000 MG, PER DAY
     Route: 065
  5. QUETIAPINE. [Suspect]
     Active Substance: QUETIAPINE
     Indication: SCHIZOAFFECTIVE DISORDER
     Dosage: 600 MG, PER DAY
     Route: 065
  6. CLOZAPINE. [Interacting]
     Active Substance: CLOZAPINE
     Dosage: 250 MG, ON DAY 11
     Route: 065
  7. CLOZAPINE. [Interacting]
     Active Substance: CLOZAPINE
     Indication: SCHIZOAFFECTIVE DISORDER
     Dosage: 25 MG, ON DAY 1
     Route: 065
  8. CLOZAPINE. [Interacting]
     Active Substance: CLOZAPINE
     Dosage: 150 MG, ON DAY 8, 9 AND 10
     Route: 065
  9. CLOZAPINE. [Interacting]
     Active Substance: CLOZAPINE
     Dosage: 350 MG, ON DAY 12, 13 AND 14
     Route: 065
  10. BENZTROPINE [Suspect]
     Active Substance: BENZTROPINE
     Indication: SCHIZOAFFECTIVE DISORDER
     Dosage: 4 MG, PER DAY
     Route: 065
  11. LISINOPRIL. [Suspect]
     Active Substance: LISINOPRIL
     Indication: HYPERTENSION
     Dosage: 10 MG, PER DAY
     Route: 065

REACTIONS (4)
  - Drug interaction [Unknown]
  - Tardive dyskinesia [Unknown]
  - Myocarditis [Fatal]
  - Drug ineffective [Unknown]
